FAERS Safety Report 15328498 (Version 1)
Quarter: 2018Q3

REPORT INFORMATION
  Report Type: Spontaneous
  Country: CA (occurrence: CA)
  Receive Date: 20180829
  Receipt Date: 20180829
  Transmission Date: 20181010
  Serious: Yes (Hospitalization, Other)
  Sender: FDA-Public Use
  Company Number: CA-ROCHE-2159153

PATIENT
  Age: 37 Year
  Sex: Female
  Weight: 150 kg

DRUGS (6)
  1. TYLENOL [Concomitant]
     Active Substance: ACETAMINOPHEN
  2. CARBOPLATIN. [Suspect]
     Active Substance: CARBOPLATIN
     Indication: PRODUCT USED FOR UNKNOWN INDICATION
     Route: 065
  3. LENOLTEC #1 [Concomitant]
  4. HERCEPTIN [Suspect]
     Active Substance: TRASTUZUMAB
     Indication: HER-2 POSITIVE BREAST CANCER
     Route: 042
     Dates: start: 20180712
  5. ROPINIROLE. [Concomitant]
     Active Substance: ROPINIROLE
  6. NOVAMOXIN [Concomitant]
     Active Substance: AMOXICILLIN

REACTIONS (5)
  - Erythema [Recovered/Resolved]
  - Rash generalised [Recovered/Resolved]
  - Palatal swelling [Recovered/Resolved]
  - Anaphylactic reaction [Recovered/Resolved]
  - Pruritus [Recovered/Resolved]

NARRATIVE: CASE EVENT DATE: 20180712
